FAERS Safety Report 15326402 (Version 1)
Quarter: 2018Q3

REPORT INFORMATION
  Report Type: Spontaneous
  Country: US (occurrence: US)
  Receive Date: 20180828
  Receipt Date: 20180828
  Transmission Date: 20181010
  Serious: No
  Sender: FDA-Public Use
  Company Number: US-SA-2018SA239231

PATIENT
  Sex: Female

DRUGS (3)
  1. AZITHROMYCIN ANHYDROUS. [Concomitant]
     Active Substance: AZITHROMYCIN ANHYDROUS
  2. ZANTAC [Suspect]
     Active Substance: RANITIDINE HYDROCHLORIDE
  3. TYLENOL ALL/SINUS [Concomitant]

REACTIONS (11)
  - Wheezing [Unknown]
  - Ear infection [Unknown]
  - Nasopharyngitis [Unknown]
  - Headache [Unknown]
  - Dry mouth [Unknown]
  - Sneezing [Unknown]
  - Eye discharge [Unknown]
  - Cough [Unknown]
  - Product use issue [Unknown]
  - Sinus disorder [Unknown]
  - Hypersensitivity [Unknown]
